FAERS Safety Report 24972957 (Version 1)
Quarter: 2025Q1

REPORT INFORMATION
  Report Type: Spontaneous
  Country: GB (occurrence: GB)
  Receive Date: 20250215
  Receipt Date: 20250215
  Transmission Date: 20250408
  Serious: Yes (Other)
  Sender: ALKEM
  Company Number: None

PATIENT
  Age: 43 Year
  Sex: Female
  Weight: 79 kg

DRUGS (1)
  1. IBUPROFEN [Suspect]
     Active Substance: IBUPROFEN
     Indication: Ill-defined disorder
     Route: 065
     Dates: start: 20241107

REACTIONS (2)
  - Syncope [Unknown]
  - Vomiting [Unknown]
